FAERS Safety Report 8910585 (Version 2)
Quarter: 2012Q4

REPORT INFORMATION
  Report Type: 
  Country: US (occurrence: US)
  Receive Date: 20121114
  Receipt Date: 20121211
  Transmission Date: 20130627
  Serious: Yes (Hospitalization)
  Sender: FDA-Public Use
  Company Number: US-GLAXOSMITHKLINE-A1000791A

PATIENT
  Sex: Male

DRUGS (7)
  1. PAXIL [Suspect]
     Indication: PRODUCT USED FOR UNKNOWN INDICATION
     Dosage: 20MG Unknown
     Route: 065
  2. KLONOPIN [Suspect]
     Indication: PRODUCT USED FOR UNKNOWN INDICATION
  3. ABILIFY [Suspect]
     Indication: PRODUCT USED FOR UNKNOWN INDICATION
  4. DEPAKOTE [Suspect]
     Indication: PRODUCT USED FOR UNKNOWN INDICATION
  5. OXYCONTIN [Suspect]
     Indication: PAIN
     Dosage: 40MG Twice per day
  6. XANAX [Suspect]
     Indication: PRODUCT USED FOR UNKNOWN INDICATION
  7. PERCOCET [Concomitant]
     Dosage: 5MG As required

REACTIONS (29)
  - Respiratory depression [Recovering/Resolving]
  - Brain injury [Unknown]
  - Suicidal ideation [Unknown]
  - Bipolar disorder [Unknown]
  - Anxiety [Unknown]
  - Injury [Unknown]
  - Musculoskeletal chest pain [Unknown]
  - Mania [Unknown]
  - Nasopharyngitis [Unknown]
  - Somnolence [Unknown]
  - Oxygen saturation decreased [Unknown]
  - Miosis [Unknown]
  - Respiratory rate decreased [Unknown]
  - Pallor [Unknown]
  - Unresponsive to stimuli [Unknown]
  - Salivary hypersecretion [Unknown]
  - Overdose [Unknown]
  - Lung infiltration [Unknown]
  - Aspiration [Unknown]
  - Hypoxia [Unknown]
  - Impaired self-care [Unknown]
  - Personality change [Unknown]
  - Suicide attempt [Unknown]
  - Intentional drug misuse [Unknown]
  - Drug interaction [Unknown]
  - Facial bones fracture [Unknown]
  - Pneumonia [Unknown]
  - Personality disorder [Unknown]
  - Drug administration error [Unknown]
